FAERS Safety Report 15713968 (Version 1)
Quarter: 2018Q4

REPORT INFORMATION
  Report Type: Spontaneous
  Country: JP (occurrence: JP)
  Receive Date: 20181212
  Receipt Date: 20181212
  Transmission Date: 20190205
  Serious: Yes (Other)
  Sender: FDA-Public Use
  Company Number: JP-SA-2018SA232172

PATIENT
  Age: 26 Year
  Sex: Male

DRUGS (5)
  1. FAROPENEM SODIUM [Suspect]
     Active Substance: FAROPENEM SODIUM
     Indication: ACNE
     Dosage: 200 MG, TID
     Route: 048
     Dates: start: 20120912, end: 20120913
  2. KERATINAMIN [Concomitant]
     Active Substance: UREA
     Dosage: UNK
     Route: 065
     Dates: start: 20120912
  3. DALACIN T [Concomitant]
     Active Substance: CLINDAMYCIN PHOSPHATE
     Dosage: UNK
     Route: 065
     Dates: start: 20120912
  4. LEVOCETIRIZINE [Suspect]
     Active Substance: LEVOCETIRIZINE
     Indication: DYSHIDROTIC ECZEMA
     Dosage: 5 MG, QD
     Route: 048
     Dates: start: 20120912, end: 20120913
  5. CLOBETASOL PROPIONATE. [Suspect]
     Active Substance: CLOBETASOL PROPIONATE
     Indication: DYSHIDROTIC ECZEMA
     Dosage: UNK
     Route: 061
     Dates: start: 20120912

REACTIONS (1)
  - Toxic skin eruption [Unknown]

NARRATIVE: CASE EVENT DATE: 20120913
